FAERS Safety Report 5793109-1 (Version None)
Quarter: 2008Q2

REPORT INFORMATION
  Report Type: 
  Country: None (occurrence: None)
  Receive Date: 20080626
  Receipt Date: 20080626
  Transmission Date: 20081010
  Serious: Yes (Death, Life-Threatening, Hospitalization, Other)
  Sender: FDA-Public Use
  Company Number: None

PATIENT
  Age: 31 Year
  Sex: Female

DRUGS (2)
  1. DOXYCYCLINE [Suspect]
     Indication: CELLULITIS
     Dosage: ORAL
     Route: 048
  2. MODAFINIL [Suspect]
     Indication: FATIGUE
     Dosage: ORAL
     Route: 048

REACTIONS (24)
  - ANXIETY [None]
  - BLOOD PRESSURE DECREASED [None]
  - CARDIAC FAILURE [None]
  - CELLULITIS [None]
  - CHEST DISCOMFORT [None]
  - DOCUMENTED HYPERSENSITIVITY TO ADMINISTERED DRUG [None]
  - DRUG DISPENSING ERROR [None]
  - DYSURIA [None]
  - EOSINOPHILIC MYOCARDITIS [None]
  - HYPERSENSITIVITY [None]
  - HYPOTENSION [None]
  - LEFT VENTRICULAR DYSFUNCTION [None]
  - LYMPHADENOPATHY [None]
  - NO THERAPEUTIC RESPONSE [None]
  - PAROTID GLAND ENLARGEMENT [None]
  - PELVIC PAIN [None]
  - PULMONARY OEDEMA [None]
  - RASH MACULO-PAPULAR [None]
  - RASH PRURITIC [None]
  - RIGHT VENTRICULAR DYSFUNCTION [None]
  - URTICARIA [None]
  - VENTRICULAR TACHYARRHYTHMIA [None]
  - VISION BLURRED [None]
  - WRONG DRUG ADMINISTERED [None]
